FAERS Safety Report 7283316-3 (Version None)
Quarter: 2011Q1

REPORT INFORMATION
  Report Type: 
  Country: None (occurrence: None)
  Receive Date: 20110209
  Receipt Date: 20101230
  Transmission Date: 20110831
  Serious: Yes (Death, Other)
  Sender: FDA-Public Use
  Company Number: US-BAXTER-2010BH004277

PATIENT
  Age: 44 Year
  Sex: Male

DRUGS (11)
  1. VALSARTAN [Concomitant]
     Indication: BLOOD PRESSURE
     Route: 048
  2. LISINOPRIL [Concomitant]
     Indication: PRODUCT USED FOR UNKNOWN INDICATION
     Route: 065
  3. PRILOSEC [Concomitant]
     Indication: PRODUCT USED FOR UNKNOWN INDICATION
     Route: 065
  4. WARFARIN SODIUM [Concomitant]
     Indication: PRODUCT USED FOR UNKNOWN INDICATION
     Route: 065
  5. ASPIRIN [Concomitant]
     Indication: CARDIAC DISORDER
     Route: 048
  6. SIMVASTATIN [Concomitant]
     Indication: PRODUCT USED FOR UNKNOWN INDICATION
     Route: 048
  7. COREG [Concomitant]
     Indication: CARDIAC DISORDER
     Route: 048
  8. HEPARIN SODIUM INJECTION [Suspect]
     Indication: MYOCARDIAL INFARCTION
     Route: 040
     Dates: start: 20080216, end: 20080216
  9. PLAVIX [Concomitant]
     Indication: CARDIAC DISORDER
     Route: 048
  10. AMBIEN [Concomitant]
     Indication: PRODUCT USED FOR UNKNOWN INDICATION
     Route: 065
  11. HEPARIN SODIUM 1,000 UNITS AND SODIUM CHLORIDE 0.9% [Suspect]
     Indication: MYOCARDIAL INFARCTION
     Route: 042
     Dates: start: 20080216

REACTIONS (6)
  - PULSELESS ELECTRICAL ACTIVITY [None]
  - HYPOTENSION [None]
  - PYREXIA [None]
  - RESPIRATORY ARREST [None]
  - MYOCARDIAL INFARCTION [None]
  - CARDIAC ARREST [None]
